FAERS Safety Report 15879374 (Version 1)
Quarter: 2019Q1

REPORT INFORMATION
  Report Type: Spontaneous
  Country: US (occurrence: US)
  Receive Date: 20190126
  Receipt Date: 20190126
  Transmission Date: 20190417
  Serious: Yes (Disabling)
  Sender: FDA-Public Use
  Company Number: None

PATIENT
  Age: 60 Year
  Sex: Female
  Weight: 57.6 kg

DRUGS (1)
  1. CALCITONIN-SALMON 200 UNITS SP [Suspect]
     Active Substance: CALCITONIN SALMON
     Indication: PERIARTHRITIS
     Dosage: ?          QUANTITY:1 SPRAY(S);OTHER ROUTE:NASAL SPRAY?
     Dates: start: 20181030, end: 20181110

REACTIONS (2)
  - Tinnitus [None]
  - Speech disorder [None]

NARRATIVE: CASE EVENT DATE: 20181110
